FAERS Safety Report 23889788 (Version 1)
Quarter: 2024Q2

REPORT INFORMATION
  Report Type: Spontaneous
  Country: PT (occurrence: PT)
  Receive Date: 20240523
  Receipt Date: 20240523
  Transmission Date: 20240715
  Serious: Yes (Hospitalization, Other)
  Sender: FDA-Public Use
  Company Number: PT-MALLINCKRODT-MNK202403255

PATIENT
  Age: 47 Year
  Sex: Male

DRUGS (1)
  1. UVADEX [Suspect]
     Active Substance: METHOXSALEN
     Indication: Graft versus host disease
     Dosage: UNKNOWN
     Route: 050
     Dates: start: 202308

REACTIONS (5)
  - Ischaemic stroke [Unknown]
  - Hypercholesterolaemia [Unknown]
  - Carotid artery stenosis [Unknown]
  - Atrial septal defect [Unknown]
  - Product use in unapproved indication [Unknown]

NARRATIVE: CASE EVENT DATE: 20230801
